FAERS Safety Report 10333382 (Version 1)
Quarter: 2014Q3

REPORT INFORMATION
  Report Type: Spontaneous
  Country: US (occurrence: US)
  Receive Date: 20140722
  Receipt Date: 20140722
  Transmission Date: 20150326
  Serious: No
  Sender: FDA-Public Use
  Company Number: US-SANOFI-AVENTIS-2013SA079118

PATIENT
  Age: 49 Year
  Sex: Female

DRUGS (1)
  1. AMBIEN [Suspect]
     Active Substance: ZOLPIDEM TARTRATE
     Indication: SLEEP DISORDER
     Dosage: DOSE:STARTED WITH 5 MG AND  PREVIOUSLY TAKING 20 MG AND NOW 10 MG.
     Route: 065
     Dates: start: 2003

REACTIONS (1)
  - Adverse event [Recovered/Resolved]
